FAERS Safety Report 13758283 (Version 1)
Quarter: 2017Q3

REPORT INFORMATION
  Report Type: Spontaneous
  Country: US (occurrence: US)
  Receive Date: 20170717
  Receipt Date: 20170717
  Transmission Date: 20171127
  Serious: Yes (Hospitalization)
  Sender: FDA-Public Use
  Company Number: US-PFIZER INC-2017305220

PATIENT
  Age: 74 Year
  Sex: Male

DRUGS (1)
  1. LIPITOR [Suspect]
     Active Substance: ATORVASTATIN CALCIUM
     Indication: CEREBROVASCULAR ACCIDENT PROPHYLAXIS
     Dosage: UNK
     Dates: start: 20170701, end: 201707

REACTIONS (3)
  - Pancreatitis acute [Unknown]
  - Abdominal pain upper [Recovered/Resolved]
  - Vitamin B12 decreased [Unknown]

NARRATIVE: CASE EVENT DATE: 201707
